FAERS Safety Report 9204728 (Version 1)
Quarter: 2013Q2

REPORT INFORMATION
  Report Type: Spontaneous
  Country: US (occurrence: US)
  Receive Date: 20130402
  Receipt Date: 20130402
  Transmission Date: 20140414
  Serious: No
  Sender: FDA-Public Use
  Company Number: US-TEVA-393270USA

PATIENT
  Age: 52 Year
  Sex: Female

DRUGS (11)
  1. NUVIGIL [Suspect]
     Indication: FATIGUE
  2. PROTONIX [Concomitant]
     Indication: GASTROOESOPHAGEAL REFLUX DISEASE
     Dosage: QD
     Route: 048
  3. CLARINEX [Concomitant]
     Indication: SEASONAL ALLERGY
     Dosage: QD
     Route: 048
  4. SINGULAIR [Concomitant]
     Dosage: QD
     Route: 048
  5. NASACORT AQ [Concomitant]
     Indication: SEASONAL ALLERGY
     Dosage: ONE STRAY 1-2 TIMES PER DAY PRN
     Route: 045
  6. HUMIRA [Concomitant]
     Indication: RHEUMATOID ARTHRITIS
     Dosage: Q 2 WKS
     Route: 058
  7. CELEBREX [Concomitant]
     Indication: ARTHRITIS
     Dosage: PRN
     Route: 048
  8. RESTASIS [Concomitant]
     Indication: SEASONAL ALLERGY
     Dosage: ONE DROP QD
     Route: 047
  9. ALOSTAT [Concomitant]
     Dosage: PRN
  10. ESTRIADOL [Concomitant]
     Indication: HORMONE REPLACEMENT THERAPY
     Dosage: QD
     Route: 048
  11. PROGESTERONE [Concomitant]
     Indication: HORMONE REPLACEMENT THERAPY
     Dosage: QD
     Route: 048

REACTIONS (9)
  - Costochondritis [Unknown]
  - Feeling jittery [Not Recovered/Not Resolved]
  - Headache [Not Recovered/Not Resolved]
  - Insomnia [Not Recovered/Not Resolved]
  - Dry mouth [Not Recovered/Not Resolved]
  - Chest pain [Not Recovered/Not Resolved]
  - Agitation [Not Recovered/Not Resolved]
  - Feeling abnormal [Not Recovered/Not Resolved]
  - Off label use [Unknown]
